FAERS Safety Report 25247739 (Version 2)
Quarter: 2025Q2

REPORT INFORMATION
  Report Type: Report from Study
  Country: US (occurrence: US)
  Receive Date: 20250428
  Receipt Date: 20250602
  Transmission Date: 20250716
  Serious: Yes (Other)
  Sender: ABBVIE
  Company Number: US-ABBVIE-6252209

PATIENT
  Age: 43 Year
  Sex: Female

DRUGS (1)
  1. HUMIRA [Suspect]
     Active Substance: ADALIMUMAB
     Indication: Crohn^s disease
     Route: 058
     Dates: start: 20240326

REACTIONS (12)
  - Long QT syndrome [Not Recovered/Not Resolved]
  - Cough [Not Recovered/Not Resolved]
  - Illness [Recovered/Resolved]
  - Cardiomegaly [Not Recovered/Not Resolved]
  - Fistula [Not Recovered/Not Resolved]
  - Respiratory tract congestion [Not Recovered/Not Resolved]
  - Ear infection [Recovered/Resolved]
  - Sinus pain [Recovered/Resolved]
  - Tension headache [Recovered/Resolved]
  - Device leakage [Recovered/Resolved]
  - Back pain [Recovering/Resolving]
  - Device use issue [Recovered/Resolved]

NARRATIVE: CASE EVENT DATE: 20250401
